FAERS Safety Report 10548006 (Version 1)
Quarter: 2014Q4

REPORT INFORMATION
  Report Type: Spontaneous
  Country: BR (occurrence: None)
  Receive Date: 20141024
  Receipt Date: 20141024
  Transmission Date: 20150529
  Serious: Yes (Other)
  Sender: FDA-Public Use
  Company Number: PAN-2014-000118

PATIENT
  Age: 55 Year
  Sex: Female

DRUGS (3)
  1. PREDNISONE (PREDNISONE) [Suspect]
     Active Substance: PREDNISONE
     Indication: IMMUNOSUPPRESSION
  2. TACROLIMUS (TACROLIMUS) UNKNOWN, UNKUNK [Suspect]
     Active Substance: TACROLIMUS
     Indication: IMMUNOSUPPRESSION
  3. AZATHIOPRINE (AZATHIOPRINE) [Suspect]
     Active Substance: AZATHIOPRINE
     Indication: IMMUNOSUPPRESSION

REACTIONS (1)
  - Phaehyphomycosis [None]
